FAERS Safety Report 8784739 (Version 1)
Quarter: 2012Q4

REPORT INFORMATION
  Report Type: 
  Country: ES (occurrence: ES)
  Receive Date: 20120914
  Receipt Date: 20120914
  Transmission Date: 20130627
  Serious: Yes (Other)
  Sender: FDA-Public Use
  Company Number: ES-009507513-1209ESP005286

PATIENT

DRUGS (6)
  1. CARBIDOPA (+) LEVODOPA [Suspect]
     Indication: PARKINSON^S DISEASE
     Route: 048
     Dates: start: 201203, end: 20120407
  2. ZYPREXA [Interacting]
     Indication: ACUTE PSYCHOSIS
     Route: 048
     Dates: start: 201203, end: 20120407
  3. DEPRAX (TRAZODONE HYDROCHLORIDE) [Interacting]
     Indication: ANXIETY
     Route: 048
     Dates: start: 201203, end: 20120407
  4. STELARA [Concomitant]
     Indication: PSORIASIS
     Route: 048
     Dates: end: 20120407
  5. ESCITALOPRAM [Interacting]
     Indication: DEPRESSION
     Route: 048
     Dates: start: 201203, end: 20120407
  6. OMEPRAZOLE [Concomitant]
     Indication: PROPHYLAXIS
     Route: 048
     Dates: end: 20120407

REACTIONS (1)
  - Acute psychosis [Recovered/Resolved]
